FAERS Safety Report 4555508-5 (Version None)
Quarter: 2005Q1

REPORT INFORMATION
  Report Type: 
  Country: None (occurrence: None)
  Receive Date: 20050119
  Receipt Date: 20040220
  Transmission Date: 20050727
  Serious: Yes (Life-Threatening, Other)
  Sender: FDA-Public Use
  Company Number: AU-NOVOPROD-235457

PATIENT
  Age: 10 Year
  Sex: Female
  Weight: 23 kg

DRUGS (2)
  1. NORDITROPIN SIMPLEXX [Suspect]
     Indication: NOONAN SYNDROME
     Dosage: .8 MG, QD
     Route: 058
     Dates: start: 20000204, end: 20040204
  2. ETHOSUXIMIDE [Concomitant]
     Route: 048
     Dates: start: 20000101

REACTIONS (1)
  - ASTROCYTOMA [None]
